FAERS Safety Report 4354923-2 (Version None)
Quarter: 2004Q2

REPORT INFORMATION
  Report Type: 
  Country: None (occurrence: None)
  Receive Date: 20040510
  Receipt Date: 20040430
  Transmission Date: 20050107
  Serious: Yes (Other)
  Sender: FDA-Public Use
  Company Number: PHBS2004SE05925

PATIENT
  Age: 37 Year
  Sex: Female

DRUGS (4)
  1. ELIDEL [Suspect]
     Indication: DERMATITIS ATOPIC
     Dates: start: 20040428, end: 20040429
  2. TAVEGYL [Concomitant]
     Indication: RHINITIS ALLERGIC
     Dosage: UNK, BID
     Route: 048
  3. PROPYLENE GLYCOL [Concomitant]
     Indication: DERMATITIS ATOPIC
  4. STEROIDS NOS [Concomitant]
     Indication: DERMATITIS ATOPIC

REACTIONS (15)
  - ANAPHYLACTIC REACTION [None]
  - APPLICATION SITE ERYTHEMA [None]
  - APPLICATION SITE PARAESTHESIA [None]
  - APPLICATION SITE SWELLING [None]
  - APPLICATION SITE WARMTH [None]
  - ASTHENIA [None]
  - BLOOD PRESSURE DECREASED [None]
  - DIZZINESS [None]
  - DRUG EXPOSURE DURING PREGNANCY [None]
  - DYSPNOEA [None]
  - FLUSHING [None]
  - HYPERVENTILATION [None]
  - HYPOTHERMIA [None]
  - PALPITATIONS [None]
  - RASH PRURITIC [None]
